FAERS Safety Report 8168501-0 (Version None)
Quarter: 2012Q1

REPORT INFORMATION
  Report Type: 
  Country: None (occurrence: None)
  Receive Date: 20120227
  Receipt Date: 20120227
  Transmission Date: 20120608
  Serious: Yes (Life-Threatening)
  Sender: FDA-Public Use
  Company Number: None

PATIENT
  Age: 82 Year
  Sex: Female

DRUGS (1)
  1. HYDROMORPHONE HCL [Suspect]
     Indication: POSTOPERATIVE CARE
     Dosage: 0.5 MG
     Route: 040
     Dates: start: 20120221, end: 20120221

REACTIONS (3)
  - DYSPNOEA [None]
  - RESPIRATORY TRACT OEDEMA [None]
  - LIP DISCOLOURATION [None]
